FAERS Safety Report 20957487 (Version 1)
Quarter: 2022Q2

REPORT INFORMATION
  Report Type: Spontaneous
  Country: JP (occurrence: JP)
  Receive Date: 20220614
  Receipt Date: 20220614
  Transmission Date: 20220721
  Serious: Yes (Death, Hospitalization)
  Sender: FDA-Public Use
  Company Number: JP-PFIZER INC-202200803388

PATIENT
  Age: 91 Year
  Sex: Female
  Weight: 29.3 kg

DRUGS (3)
  1. HYDROCORTISONE SODIUM SUCCINATE [Suspect]
     Active Substance: HYDROCORTISONE SODIUM SUCCINATE
     Indication: Hyperthyroidism
     Dosage: UNK
     Route: 042
  2. METHIMAZOLE [Suspect]
     Active Substance: METHIMAZOLE
     Indication: Hyperthyroidism
     Dosage: UNK
     Route: 048
  3. LANDIOLOL [Concomitant]
     Active Substance: LANDIOLOL
     Indication: Tachycardia
     Dosage: UNK

REACTIONS (2)
  - Drug ineffective [Fatal]
  - Condition aggravated [Fatal]
